FAERS Safety Report 8113474-X (Version None)
Quarter: 2012Q1

REPORT INFORMATION
  Report Type: 
  Country: None (occurrence: None)
  Receive Date: 20120203
  Receipt Date: 20120130
  Transmission Date: 20120608
  Serious: Yes (Other)
  Sender: FDA-Public Use
  Company Number: DE-TEVA-319186USA

PATIENT

DRUGS (1)
  1. ZINC ACETATE 25 MG + 50 MG CAPSULES [Suspect]
     Indication: HEPATO-LENTICULAR DEGENERATION
     Route: 064

REACTIONS (1)
  - GLUCOSE-6-PHOSPHATE DEHYDROGENASE DEFICIENCY [None]
